FAERS Safety Report 13307445 (Version 1)
Quarter: 2017Q1

REPORT INFORMATION
  Report Type: Spontaneous
  Country: GB (occurrence: GB)
  Receive Date: 20170308
  Receipt Date: 20170308
  Transmission Date: 20170428
  Serious: Yes (Life-Threatening)
  Sender: FDA-Public Use
  Company Number: PHHY2017GB030603

PATIENT
  Age: 58 Year
  Sex: Female

DRUGS (1)
  1. RISPERIDONE. [Suspect]
     Active Substance: RISPERIDONE
     Indication: DEPRESSION
     Dosage: 500 UG, 5QD
     Route: 048
     Dates: start: 20150515, end: 20161205

REACTIONS (1)
  - Suicidal ideation [Recovered/Resolved]
